FAERS Safety Report 5614552-7 (Version None)
Quarter: 2008Q1

REPORT INFORMATION
  Report Type: 
  Country: None (occurrence: None)
  Receive Date: 20080205
  Receipt Date: 20080110
  Transmission Date: 20080703
  Serious: No
  Sender: FDA-Public Use
  Company Number: US-BOEHRINGER INGELHEIM GMBH, GERMANY-2007-BP-25235BP

PATIENT
  Sex: Male

DRUGS (5)
  1. SPIRIVA [Suspect]
     Indication: CHRONIC OBSTRUCTIVE PULMONARY DISEASE
     Route: 055
     Dates: start: 20071101
  2. SPIRIVA [Suspect]
     Indication: PULMONARY CONGESTION
  3. SPIRIVA [Suspect]
     Indication: ASTHMA
  4. QVAR 40 [Concomitant]
  5. ALBUTEROL [Concomitant]

REACTIONS (2)
  - DRY MOUTH [None]
  - THERAPEUTIC REACTION TIME DECREASED [None]
